FAERS Safety Report 9290260 (Version 2)
Quarter: 2013Q3

REPORT INFORMATION
  Report Type: Report from Study
  Country: AR (occurrence: AR)
  Receive Date: 20130515
  Receipt Date: 20130701
  Transmission Date: 20140515
  Serious: Yes (Hospitalization)
  Sender: FDA-Public Use
  Company Number: AR-BRISTOL-MYERS SQUIBB COMPANY-18871426

PATIENT
  Age: 64 Year
  Sex: Female
  Weight: 75.5 kg

DRUGS (16)
  1. PACLITAXEL [Suspect]
     Indication: BREAST CANCER METASTATIC
     Dosage: LAST DOSE ON 145 MG
     Route: 042
     Dates: start: 20130411
  2. BLINDED: BEVACIZUMAB [Suspect]
     Indication: BREAST CANCER
     Route: 042
     Dates: start: 20130411
  3. BLINDED: PLACEBO [Suspect]
     Indication: BREAST CANCER METASTATIC
     Route: 042
     Dates: start: 20130411
  4. LEVOTHYROXINE SODIUM [Concomitant]
     Indication: HYPOTHYROIDISM
     Dates: start: 2007
  5. FENOFIBRATE [Concomitant]
     Indication: HYPERCHOLESTEROLAEMIA
     Dates: start: 2007
  6. CANDESARTAN [Concomitant]
     Indication: HYPERTENSION
     Dates: start: 2008
  7. INSULIN [Concomitant]
     Indication: DIABETES MELLITUS
     Dates: start: 2008
  8. METFORMIN [Concomitant]
     Indication: DIABETES MELLITUS
     Dates: start: 2008
  9. CILOSTAZOL [Concomitant]
     Indication: ANGIOPATHY
     Dates: start: 2009
  10. ASPIRIN [Concomitant]
     Indication: ANGIOPATHY
     Dates: start: 2009
  11. IBUPROFEN [Concomitant]
     Indication: BONE PAIN
     Dates: start: 201211
  12. DICLOFENAC POTASSIUM [Concomitant]
  13. DEXTROPROPOXYPHENE HCL [Concomitant]
     Indication: PAIN IN EXTREMITY
     Dates: start: 20130412
  14. PREGABALIN [Concomitant]
     Indication: BONE PAIN
     Dates: start: 20130418
  15. QUININE SULFATE [Concomitant]
     Indication: MUSCLE SPASMS
     Dates: start: 2009
  16. ACETAMINOPHEN + DICLOFENAC POTASSIUM [Concomitant]

REACTIONS (2)
  - Pulmonary oedema [Recovered/Resolved]
  - Hypertension [Recovered/Resolved]
